FAERS Safety Report 12692627 (Version 2)
Quarter: 2016Q4

REPORT INFORMATION
  Report Type: Report from Study
  Country: US (occurrence: US)
  Receive Date: 20160829
  Receipt Date: 20161010
  Transmission Date: 20170207
  Serious: No
  Sender: FDA-Public Use
  Company Number: PHEH2016US021214

PATIENT
  Sex: Female
  Weight: 62.6 kg

DRUGS (16)
  1. EXTAVIA [Suspect]
     Active Substance: INTERFERON BETA-1B
     Dosage: WEEKS 5-6: 0.1875 MG (0.75 ML), QOD
     Route: 058
  2. EXTAVIA [Suspect]
     Active Substance: INTERFERON BETA-1B
     Dosage: WEEKS 7+: 0.25 MG (1 ML) AND MAINTENANCE, QOD
     Route: 058
  3. MULTI VITAMIN [Concomitant]
     Active Substance: VITAMINS
     Indication: PRODUCT USED FOR UNKNOWN INDICATION
     Dosage: 1 DF, QD
     Route: 048
     Dates: start: 20121129
  4. CALCIUM [Concomitant]
     Active Substance: CALCIUM
     Indication: PRODUCT USED FOR UNKNOWN INDICATION
     Dosage: 1 DF, QD
     Route: 048
     Dates: start: 20121126
  5. METRONIDAZOLE. [Concomitant]
     Active Substance: METRONIDAZOLE
     Indication: PRODUCT USED FOR UNKNOWN INDICATION
     Dosage: APPLY TOPICALLY TWICE A DAY
     Route: 061
     Dates: start: 20150910
  6. MINOCYCLINE [Concomitant]
     Active Substance: MINOCYCLINE\MINOCYCLINE HYDROCHLORIDE
     Indication: PRODUCT USED FOR UNKNOWN INDICATION
     Dosage: 1 DF, BID (FOR 90 DAYS)
     Route: 048
     Dates: start: 20150910
  7. EXTAVIA [Suspect]
     Active Substance: INTERFERON BETA-1B
     Indication: MULTIPLE SCLEROSIS
     Dosage: WEEKS 1-2: 0.0625 MG (0.25 ML), QOD
     Route: 058
  8. FLUVIRIN NOS [Concomitant]
     Active Substance: INFLUENZA VIRUS VACCINE
     Indication: PRODUCT USED FOR UNKNOWN INDICATION
     Dosage: 45 MCG (15 MCG X 3)/0.5 ML
     Route: 030
     Dates: start: 20151108
  9. AMOXICILLIN. [Concomitant]
     Active Substance: AMOXICILLIN
     Indication: PRODUCT USED FOR UNKNOWN INDICATION
     Dosage: UNK
     Route: 065
     Dates: start: 20160309
  10. FLUTICASONE [Concomitant]
     Active Substance: FLUTICASONE\FLUTICASONE PROPIONATE
     Indication: PRODUCT USED FOR UNKNOWN INDICATION
     Dosage: 50 MCG (TWO SPRAY EACH RARE ONCE A DAY)
     Route: 065
     Dates: start: 20150121
  11. ATORVASTATIN [Concomitant]
     Active Substance: ATORVASTATIN
     Indication: PRODUCT USED FOR UNKNOWN INDICATION
     Dosage: 1 DF, QD (FOR 30 DAYS)
     Route: 048
     Dates: start: 20150624
  12. CYCLAFEM [Concomitant]
     Indication: PRODUCT USED FOR UNKNOWN INDICATION
     Dosage: 1 DF, QD (FRO 84 DAYS) (1/35 (28) 1 MG 35 MCG TABLET)
     Route: 048
     Dates: start: 20160120
  13. IBUPROFEN. [Concomitant]
     Active Substance: IBUPROFEN
     Indication: PRODUCT USED FOR UNKNOWN INDICATION
     Dosage: 3 DF, TID FOR 2 DAYS
     Route: 048
     Dates: start: 20160309
  14. SOLU-MEDROL [Concomitant]
     Active Substance: METHYLPREDNISOLONE SODIUM SUCCINATE
     Indication: PRODUCT USED FOR UNKNOWN INDICATION
     Dosage: 1 DF, QMO
     Route: 042
     Dates: start: 20160913
  15. VITAMIN D3 [Concomitant]
     Active Substance: CHOLECALCIFEROL
     Indication: PRODUCT USED FOR UNKNOWN INDICATION
     Dosage: 1 DF, QD
     Route: 048
  16. EXTAVIA [Suspect]
     Active Substance: INTERFERON BETA-1B
     Dosage: WEEKS 3-4: 0.125 MG (0.5 ML), QOD
     Route: 058

REACTIONS (2)
  - Nausea [Not Recovered/Not Resolved]
  - Influenza like illness [Not Recovered/Not Resolved]
